FAERS Safety Report 7086420-8 (Version None)
Quarter: 2010Q4

REPORT INFORMATION
  Report Type: 
  Country: None (occurrence: None)
  Receive Date: 20101105
  Receipt Date: 20101101
  Transmission Date: 20110411
  Serious: Yes (Death, Hospitalization)
  Sender: FDA-Public Use
  Company Number: US-CELGENEUS-163-21880-10082846

PATIENT
  Sex: Male

DRUGS (3)
  1. REVLIMID [Suspect]
     Dosage: 5-10MG
     Route: 048
     Dates: start: 20081201, end: 20090101
  2. REVLIMID [Suspect]
     Route: 048
     Dates: start: 20091001, end: 20100101
  3. REVLIMID [Suspect]
     Route: 048
     Dates: start: 20100701

REACTIONS (2)
  - MULTIPLE MYELOMA [None]
  - PNEUMONIA [None]
